FAERS Safety Report 5954625-2 (Version None)
Quarter: 2008Q4

REPORT INFORMATION
  Report Type: 
  Country: None (occurrence: None)
  Receive Date: 20081117
  Receipt Date: 20081104
  Transmission Date: 20090506
  Serious: Yes (Hospitalization)
  Sender: FDA-Public Use
  Company Number: US-CELGENEUS-163-21880-08100590

PATIENT
  Sex: Male

DRUGS (3)
  1. REVLIMID [Suspect]
     Indication: MULTIPLE MYELOMA
     Route: 048
     Dates: start: 20081008
  2. REVLIMID [Suspect]
     Dosage: 10-15 MG
     Route: 048
     Dates: start: 20070121, end: 20070301
  3. REVLIMID [Suspect]
     Route: 048
     Dates: start: 20080523, end: 20080601

REACTIONS (1)
  - COLONIC OBSTRUCTION [None]
